FAERS Safety Report 17020233 (Version 1)
Quarter: 2019Q4

REPORT INFORMATION
  Report Type: Report from Study
  Country: US (occurrence: US)
  Receive Date: 20191112
  Receipt Date: 20191112
  Transmission Date: 20200122
  Serious: Yes (Other)
  Sender: FDA-Public Use
  Company Number: US-TEVA-2019-US-1133558

PATIENT
  Age: 42 Year
  Sex: Female

DRUGS (2)
  1. INTERFERRONS [Suspect]
     Active Substance: INTERFERON
     Route: 065
  2. COPAXONE [Suspect]
     Active Substance: GLATIRAMER ACETATE

REACTIONS (16)
  - Feeling hot [Unknown]
  - Nausea [Unknown]
  - Vulvovaginal pain [Recovered/Resolved]
  - Hepatic enzyme increased [Unknown]
  - Anxiety [Unknown]
  - Crying [Unknown]
  - Retching [Unknown]
  - Loss of consciousness [Unknown]
  - Fatigue [Unknown]
  - Muscle spasms [Unknown]
  - Somnolence [Unknown]
  - Dyspnoea [Unknown]
  - Disorientation [Unknown]
  - Hepatic enzyme abnormal [Unknown]
  - Pain [Recovered/Resolved]
  - Fear [Unknown]

NARRATIVE: CASE EVENT DATE: 20191003
